FAERS Safety Report 7456650-1 (Version None)
Quarter: 2011Q2

REPORT INFORMATION
  Report Type: 
  Country: None (occurrence: None)
  Receive Date: 20110503
  Receipt Date: 20110421
  Transmission Date: 20111010
  Serious: Yes (Hospitalization)
  Sender: FDA-Public Use
  Company Number: JP-GILEAD-E2B_00001178

PATIENT
  Age: 62 Year
  Sex: Male

DRUGS (1)
  1. HEPSERA [Suspect]
     Indication: HEPATITIS B
     Route: 048
     Dates: start: 20060101, end: 20110401

REACTIONS (1)
  - RENAL DISORDER [None]
